FAERS Safety Report 13069070 (Version 1)
Quarter: 2016Q4

REPORT INFORMATION
  Report Type: Spontaneous
  Country: US (occurrence: US)
  Receive Date: 20161228
  Receipt Date: 20161228
  Transmission Date: 20170207
  Serious: Yes (Other)
  Sender: FDA-Public Use
  Company Number: US-BAYER-2016-245929

PATIENT
  Age: 16 Year
  Sex: Female

DRUGS (2)
  1. ALEVE [Suspect]
     Active Substance: NAPROXEN SODIUM
     Indication: ANALGESIC THERAPY
     Dosage: UPTO 50
     Dates: start: 20161227, end: 20161227
  2. ALEVE [Suspect]
     Active Substance: NAPROXEN SODIUM
     Indication: ANALGESIC THERAPY
     Dosage: 1 DF, PRN, EVERY 8-12 HOURS

REACTIONS (3)
  - Accidental exposure to product [Unknown]
  - Overdose [Unknown]
  - Abdominal pain [Unknown]

NARRATIVE: CASE EVENT DATE: 20161227
